FAERS Safety Report 25253741 (Version 2)
Quarter: 2025Q2

REPORT INFORMATION
  Report Type: Report from Study
  Country: BG (occurrence: BG)
  Receive Date: 20250430
  Receipt Date: 20250523
  Transmission Date: 20250716
  Serious: Yes (Death, Hospitalization)
  Sender: ABBVIE
  Company Number: BG-ABBVIE-6256960

PATIENT
  Age: 72 Year
  Sex: Female

DRUGS (2)
  1. FOSCARBIDOPA\FOSLEVODOPA [Suspect]
     Active Substance: FOSCARBIDOPA\FOSLEVODOPA
     Indication: Parkinson^s disease
     Route: 050
     Dates: start: 20131105, end: 20250409
  2. FOSCARBIDOPA\FOSLEVODOPA [Suspect]
     Active Substance: FOSCARBIDOPA\FOSLEVODOPA

REACTIONS (6)
  - Death [Fatal]
  - Blood creatinine increased [Unknown]
  - Viral infection [Not Recovered/Not Resolved]
  - Blood urea increased [Unknown]
  - Fatigue [Unknown]
  - Hunger [Unknown]

NARRATIVE: CASE EVENT DATE: 20250301
